FAERS Safety Report 7705023-2 (Version None)
Quarter: 2011Q3

REPORT INFORMATION
  Report Type: 
  Country: None (occurrence: None)
  Receive Date: 20110823
  Receipt Date: 20110819
  Transmission Date: 20111222
  Serious: Yes (Other)
  Sender: FDA-Public Use
  Company Number: BR-PFIZER INC-2011027610

PATIENT
  Age: 39 Year
  Sex: Male
  Weight: 88 kg

DRUGS (2)
  1. CLONAZEPAM [Concomitant]
     Dosage: 1.5 MG, 1X/DAY
     Dates: start: 20100101
  2. VARENICLINE TARTRATE [Suspect]
     Indication: TOBACCO USER
     Dosage: UNK
     Route: 048
     Dates: start: 20110115

REACTIONS (2)
  - ALLERGIC RESPIRATORY DISEASE [None]
  - HYPERSENSITIVITY [None]
